FAERS Safety Report 5581516-1 (Version None)
Quarter: 2008Q1

REPORT INFORMATION
  Report Type: 
  Country: None (occurrence: None)
  Receive Date: 20080104
  Receipt Date: 20071227
  Transmission Date: 20080703
  Serious: Yes (Other)
  Sender: FDA-Public Use
  Company Number: DE-ROCHE-503514

PATIENT
  Age: 37 Year
  Sex: Male
  Weight: 88 kg

DRUGS (5)
  1. CYMEVENE [Suspect]
     Route: 042
     Dates: start: 20060825, end: 20060831
  2. VALCYTE [Suspect]
     Route: 048
     Dates: start: 20060901, end: 20061125
  3. CELLCEPT [Concomitant]
     Route: 065
  4. RAPAMUNE [Concomitant]
     Indication: IMMUNOSUPPRESSION
     Route: 065
  5. DECORTIN [Concomitant]
     Indication: IMMUNOSUPPRESSION
     Route: 065

REACTIONS (2)
  - AZOOSPERMIA [None]
  - PROSTATOVESICULITIS [None]
